FAERS Safety Report 11073471 (Version 4)
Quarter: 2015Q2

REPORT INFORMATION
  Report Type: Report from Study
  Country: US (occurrence: US)
  Receive Date: 20150428
  Receipt Date: 20150518
  Transmission Date: 20150821
  Serious: Yes (Hospitalization, Other)
  Sender: FDA-Public Use
  Company Number: US-GILEAD-2015-0150733

PATIENT
  Age: 77 Year
  Sex: Male

DRUGS (2)
  1. IDELALISIB [Suspect]
     Active Substance: IDELALISIB
     Indication: CHRONIC LYMPHOCYTIC LEUKAEMIA
     Dosage: 150 MG, BID
     Route: 048
  2. IDELALISIB [Suspect]
     Active Substance: IDELALISIB
     Dosage: 100 UNK, UNK
     Route: 048
     Dates: start: 20150403

REACTIONS (4)
  - Influenza [Unknown]
  - Pneumonia [Unknown]
  - Dyspnoea [Unknown]
  - Unevaluable event [Unknown]
